FAERS Safety Report 15328124 (Version 1)
Quarter: 2018Q3

REPORT INFORMATION
  Report Type: Report from Study
  Country: None (occurrence: US)
  Receive Date: 20180828
  Receipt Date: 20180828
  Transmission Date: 20181010
  Serious: Yes (Other)
  Sender: FDA-Public Use
  Company Number: US-ABBVIE-18S-163-2462627-00

PATIENT
  Age: 57 Year
  Sex: Male

DRUGS (1)
  1. CREON [Suspect]
     Active Substance: PANCRELIPASE AMYLASE\PANCRELIPASE LIPASE\PANCRELIPASE PROTEASE
     Indication: PRODUCT USED FOR UNKNOWN INDICATION
     Route: 048

REACTIONS (6)
  - Intestinal obstruction [Unknown]
  - Gastric operation [Unknown]
  - Spinal operation [Unknown]
  - Skin graft [Unknown]
  - Hernia [Unknown]
  - Endoscopy upper gastrointestinal tract [Unknown]

NARRATIVE: CASE EVENT DATE: 20141016
